FAERS Safety Report 8502455-X (Version None)
Quarter: 2012Q3

REPORT INFORMATION
  Report Type: 
  Country: None (occurrence: None)
  Receive Date: 20120711
  Receipt Date: 20120702
  Transmission Date: 20120928
  Serious: Yes (Other)
  Sender: FDA-Public Use
  Company Number: KR-ASTELLAS-2011JP008195

PATIENT
  Sex: Female
  Weight: 61.2 kg

DRUGS (18)
  1. NISOLONE [Concomitant]
     Dosage: 15 MG, UNKNOWN/D
     Route: 048
     Dates: start: 20111129, end: 20111219
  2. NISOLONE [Concomitant]
     Dosage: 7.5 MG, UNKNOWN/D
     Route: 048
     Dates: start: 20120117, end: 20120130
  3. AMOSARTAN [Concomitant]
     Dosage: UNK
     Route: 048
     Dates: start: 20110908, end: 20110914
  4. URSODIOL [Concomitant]
     Dosage: 600 MG, UNKNOWN/D
     Route: 048
     Dates: start: 20110922, end: 20120102
  5. NISOLONE [Concomitant]
     Dosage: 20 MG, UNKNOWN/D
     Route: 048
     Dates: start: 20111115, end: 20111128
  6. NISOLONE [Concomitant]
     Dosage: 12.5 MG, UNKNOWN/D
     Route: 048
     Dates: start: 20111220, end: 20120102
  7. NISOLONE [Concomitant]
     Dosage: 10 MG, UNKNOWN/D
     Route: 048
     Dates: start: 20120103, end: 20120116
  8. HYDROXYCHLOROQUINE SULFATE [Concomitant]
     Dosage: 200 MG, UNKNOWN/D
     Route: 048
     Dates: start: 20070404
  9. FOLIC ACID [Concomitant]
     Dosage: 1 MG, UNKNOWN/D
     Route: 048
     Dates: start: 20090623
  10. AMOSARTAN [Concomitant]
     Dosage: UNK
     Route: 048
     Dates: start: 20110926
  11. TACROLIMUS [Suspect]
     Indication: LUPUS NEPHRITIS
     Dosage: 2 MG, UNKNOWN/D
     Route: 048
     Dates: start: 20110804, end: 20120116
  12. TACROLIMUS [Suspect]
     Dosage: 3 MG, UNKNOWN/D
     Route: 048
     Dates: start: 20120117
  13. INHIBACE [Concomitant]
     Dosage: 2.5 MG, UNKNOWN/D
     Route: 048
     Dates: start: 20110825
  14. AMOSARTAN [Concomitant]
     Dosage: UNK
     Route: 048
     Dates: start: 20110915, end: 20110925
  15. NISOLONE [Concomitant]
     Dosage: 50 MG, UNKNOWN/D
     Route: 048
     Dates: start: 20070704, end: 20110927
  16. NISOLONE [Concomitant]
     Dosage: 5 MG, UNKNOWN/D
     Route: 048
     Dates: start: 20120131
  17. BAMIDE [Concomitant]
     Dosage: 200 MG, UNKNOWN/D
     Route: 048
     Dates: start: 20110714
  18. NISOLONE [Concomitant]
     Dosage: 40 MG, UNKNOWN/D
     Route: 048
     Dates: start: 20110928, end: 20111114

REACTIONS (1)
  - PYELONEPHRITIS ACUTE [None]
